FAERS Safety Report 4618423-4 (Version None)
Quarter: 2005Q2

REPORT INFORMATION
  Report Type: 
  Country: None (occurrence: None)
  Receive Date: 20050301
  Receipt Date: 20041101
  Transmission Date: 20051028
  Serious: No
  Sender: FDA-Public Use
  Company Number: 2004-BP-10400BP

PATIENT
  Age: 82 Year
  Sex: Male
  Weight: 107.5 kg

DRUGS (14)
  1. SPIRIVA [Suspect]
     Indication: CHRONIC OBSTRUCTIVE PULMONARY DISEASE
     Dosage: 18 MCG (18 MCG), IH
     Route: 055
     Dates: start: 20041011, end: 20041013
  2. SEREVENT [Concomitant]
  3. PULMICORT [Concomitant]
  4. DUONEB [Concomitant]
  5. ACETYLSALICYLIC ACID SRT [Concomitant]
  6. MULTIVITAMIN [Concomitant]
  7. VITAMIN E [Concomitant]
  8. VITAMIN C (ASCORBIC ACID) [Concomitant]
  9. FOLATE [Concomitant]
  10. CALCLIUM [Concomitant]
  11. GLUCOSE CHONDROITIN [Concomitant]
  12. FLONASE [Concomitant]
  13. FISH OIL [Concomitant]
  14. ADVIL [Concomitant]

REACTIONS (3)
  - RASH PRURITIC [None]
  - SWOLLEN TONGUE [None]
  - URTICARIA [None]
